FAERS Safety Report 6127363-3 (Version None)
Quarter: 2009Q1

REPORT INFORMATION
  Report Type: 
  Country: None (occurrence: None)
  Receive Date: 20090319
  Receipt Date: 20090303
  Transmission Date: 20090719
  Serious: Yes (Life-Threatening, Hospitalization, Other)
  Sender: FDA-Public Use
  Company Number: 2009S1003812

PATIENT
  Sex: Female

DRUGS (7)
  1. CIPROFLOXACIN (CIPROFLOXACIN) [Suspect]
     Indication: GASTROENTERITIS
     Dosage: 250 MG; ORAL
     Route: 048
     Dates: start: 20060109, end: 20060112
  2. ATENOLOL [Concomitant]
  3. BENDROFLUAZIDE (BENDROFLUMETHIAZIDE) [Concomitant]
  4. LORAZEPAM [Concomitant]
  5. MEBEVERINE (MEBEVERINE) [Concomitant]
  6. PROCHLORPERAZINE MALEATE [Concomitant]
  7. ZOLPIDEM [Concomitant]

REACTIONS (1)
  - HEPATORENAL SYNDROME [None]
